FAERS Safety Report 4985572-0 (Version None)
Quarter: 2006Q2

REPORT INFORMATION
  Report Type: 
  Country: None (occurrence: None)
  Receive Date: 20060428
  Receipt Date: 20050623
  Transmission Date: 20061013
  Serious: Yes (Hospitalization, Other)
  Sender: FDA-Public Use
  Company Number: US-GLAXOSMITHKLINE-A0563937A

PATIENT
  Age: 68 Year
  Sex: Female
  Weight: 78.6 kg

DRUGS (6)
  1. SEREVENT [Suspect]
     Indication: ASTHMA
     Dates: start: 19990430
  2. CORTICOSTEROID [Concomitant]
  3. LOCAL ANESTHESIA [Concomitant]
  4. PULMICORT [Concomitant]
     Dosage: 1PUFF TWICE PER DAY
     Dates: start: 19990430
  5. NEBULIZER [Concomitant]
  6. ALBUTEROL SULFATE AUTOHALER [Concomitant]

REACTIONS (1)
  - ATRIAL TACHYCARDIA [None]
